FAERS Safety Report 6787414-X (Version None)
Quarter: 2010Q2

REPORT INFORMATION
  Report Type: 
  Country: None (occurrence: None)
  Receive Date: 20100623
  Receipt Date: 20070404
  Transmission Date: 20101027
  Serious: No
  Sender: FDA-Public Use
  Company Number: US-PFIZER INC-2007028262

PATIENT
  Sex: Female

DRUGS (2)
  1. DEPO-PROVERA SUSPENSION/INJ [Suspect]
     Dosage: 1ST INJECTION
  2. DEPO-PROVERA SUSPENSION/INJ [Suspect]
     Dosage: 2ND INJECTION
     Dates: start: 20070215

REACTIONS (1)
  - VAGINAL HAEMORRHAGE [None]
